FAERS Safety Report 11594643 (Version 1)
Quarter: 2015Q4

REPORT INFORMATION
  Report Type: Spontaneous
  Country: US (occurrence: US)
  Receive Date: 20151005
  Receipt Date: 20151005
  Transmission Date: 20160304
  Serious: Yes (Other)
  Sender: FDA-Public Use
  Company Number: US-PFIZER INC-2015317535

PATIENT
  Age: 74 Year
  Sex: Female
  Weight: 61 kg

DRUGS (3)
  1. ADVIL [Suspect]
     Active Substance: IBUPROFEN
     Indication: MALAISE
     Dosage: 200 MG, SINGLE
     Route: 048
     Dates: start: 20150818
  2. ADVIL [Suspect]
     Active Substance: IBUPROFEN
     Indication: ARTHRITIS
     Dosage: UNK
     Dates: start: 20150918
  3. VITAMINS [Concomitant]
     Active Substance: VITAMINS
     Dosage: UNKNOWN

REACTIONS (13)
  - Panic reaction [Recovered/Resolved]
  - Shock [Unknown]
  - Rash [Recovering/Resolving]
  - Swelling face [Recovering/Resolving]
  - Nervousness [Recovered/Resolved]
  - Hypertension [Recovered/Resolved]
  - Cheilitis [Recovering/Resolving]
  - Erythema [Unknown]
  - Lip disorder [Unknown]
  - Ocular hyperaemia [Unknown]
  - Eyelid rash [Recovering/Resolving]
  - Body temperature abnormal [Recovered/Resolved]
  - Urticaria [Unknown]

NARRATIVE: CASE EVENT DATE: 20150818
